FAERS Safety Report 10009054 (Version 1)
Quarter: 2014Q1

REPORT INFORMATION
  Report Type: Spontaneous
  Country: US (occurrence: US)
  Receive Date: 20140313
  Receipt Date: 20140313
  Transmission Date: 20141002
  Serious: No
  Sender: FDA-Public Use
  Company Number: US-INCYTE CORPORATION-2012IN001380

PATIENT
  Age: 67 Year
  Sex: Female

DRUGS (7)
  1. JAKAFI [Suspect]
     Indication: MYELOFIBROSIS
     Dosage: 20 MG, BID
     Route: 048
     Dates: start: 2012
  2. CYMBALTA [Concomitant]
  3. FEMARA [Concomitant]
  4. GABAPENTIN [Concomitant]
  5. VITAMIN D [Concomitant]
  6. VITAMINS [Concomitant]
  7. FISH OIL [Concomitant]

REACTIONS (4)
  - Dyspnoea [Unknown]
  - Flatulence [Unknown]
  - Fatigue [Unknown]
  - Platelet count decreased [Unknown]
